FAERS Safety Report 9184738 (Version 5)
Quarter: 2014Q2

REPORT INFORMATION
  Report Type: Report from Study
  Country: CN (occurrence: CN)
  Receive Date: 20130324
  Receipt Date: 20140512
  Transmission Date: 20141212
  Serious: Yes (Death, Hospitalization, Other)
  Sender: FDA-Public Use
  Company Number: PHHY2013CN027505

PATIENT
  Age: 44 Year
  Sex: Male
  Weight: 51 kg

DRUGS (11)
  1. MYCOPHENOLIC ACID [Suspect]
     Indication: KIDNEY TRANSPLANT REJECTION
     Dosage: 2000 MG, QD
     Route: 048
     Dates: start: 20130111, end: 20130215
  2. OMEPRAZOLE [Concomitant]
     Indication: PROPHYLAXIS AGAINST GASTROINTESTINAL ULCER
     Dosage: 80 MG, QD
     Route: 048
     Dates: start: 20130202, end: 20130202
  3. OMEPRAZOLE [Concomitant]
     Dosage: 80 MG, QD
     Route: 048
     Dates: start: 20130317
  4. ANTIVIRALS [Concomitant]
     Indication: TRANSPLANT
     Route: 048
     Dates: start: 20130202, end: 20130202
  5. ANTIHYPERTENSIVES [Concomitant]
     Dates: start: 20130202, end: 20130202
  6. CALCIUM CHANNEL BLOCKERS [Concomitant]
     Indication: CARDIOVASCULAR DISORDER
     Route: 048
     Dates: start: 20130202, end: 20130202
  7. ANGIOTENSIN II ANTAGONISTS [Concomitant]
     Indication: CARDIOVASCULAR DISORDER
     Route: 048
     Dates: start: 20130202, end: 20130202
  8. PROTON PUMP INHIBITORS [Concomitant]
     Indication: PROPHYLAXIS
     Dates: start: 20130202, end: 20130202
  9. IMMUNOSUPPRESSANTS [Concomitant]
     Dates: start: 20130202, end: 20130202
  10. LIPOFUNDIN [Concomitant]
     Dosage: 50 ML
     Dates: start: 20130320
  11. LIPOFUNDIN [Concomitant]
     Dosage: 150 ML QD
     Route: 048
     Dates: start: 20130202, end: 20130202

REACTIONS (13)
  - Death [Fatal]
  - Hypoxic-ischaemic encephalopathy [Fatal]
  - Renal failure acute [Fatal]
  - Anoxia [Not Recovered/Not Resolved]
  - Pneumonitis [Unknown]
  - Pneumonia [Not Recovered/Not Resolved]
  - Dyspnoea [Not Recovered/Not Resolved]
  - Lung infection [Unknown]
  - Pyrexia [Not Recovered/Not Resolved]
  - Septic shock [Unknown]
  - Kidney transplant rejection [Unknown]
  - Neutrophil count increased [Not Recovered/Not Resolved]
  - White blood cell count increased [Not Recovered/Not Resolved]
